FAERS Safety Report 8871447 (Version 1)
Quarter: 2012Q4

REPORT INFORMATION
  Report Type: 
  Country: US (occurrence: US)
  Receive Date: 20121023
  Receipt Date: 20121023
  Transmission Date: 20130627
  Serious: No
  Sender: FDA-Public Use
  Company Number: US-ASTELLAS-2012US008199

PATIENT
  Sex: Female
  Weight: 66 kg

DRUGS (9)
  1. PROGRAF [Suspect]
     Indication: RENAL TRANSPLANT
     Dosage: 5 mg, bid
     Route: 048
     Dates: start: 20110722
  2. ESCITALOPRAM [Concomitant]
     Indication: ANXIETY
     Dosage: 10 mg, UID/QD
     Route: 048
     Dates: start: 201205
  3. ESCITALOPRAM [Concomitant]
     Indication: DEPRESSION
  4. ASPIRIN [Concomitant]
     Indication: PRODUCT USED FOR UNKNOWN INDICATION
     Dosage: 81 mg, UID/QD
     Route: 048
     Dates: start: 20110722
  5. PREDNISONE [Concomitant]
     Indication: RENAL TRANSPLANT
     Dosage: 5 mg, UID/QD
     Route: 048
     Dates: start: 20110722
  6. BACTRIM DS [Concomitant]
     Indication: ANTIBIOTIC THERAPY
     Dosage: 800-160 on Mondays, Wednesdays and Fridays
     Route: 048
     Dates: start: 20110722
  7. KETOCONAZOLE [Concomitant]
     Indication: ADJUVANT THERAPY
     Dosage: 100 mg, UID/QD
     Route: 048
     Dates: start: 20110722
  8. LANTUS [Concomitant]
     Indication: DIABETES MELLITUS
     Dosage: 15 U, as needed bid
     Route: 058
     Dates: start: 1991
  9. HUMULIN [Concomitant]
     Indication: DIABETES MELLITUS
     Dosage: 15 units as needed with meals
     Route: 058
     Dates: start: 1991

REACTIONS (1)
  - Nasopharyngitis [Not Recovered/Not Resolved]
